FAERS Safety Report 6291721-7 (Version None)
Quarter: 2009Q3

REPORT INFORMATION
  Report Type: 
  Country: None (occurrence: None)
  Receive Date: 20090730
  Receipt Date: 20090721
  Transmission Date: 20100115
  Serious: Yes (Other)
  Sender: FDA-Public Use
  Company Number: PHHY2009FR30774

PATIENT
  Sex: Female
  Weight: 1.38 kg

DRUGS (1)
  1. GLEEVEC [Suspect]
     Route: 065

REACTIONS (2)
  - PATERNAL DRUGS AFFECTING FOETUS [None]
  - PREMATURE BABY [None]
